FAERS Safety Report 23513571 (Version 3)
Quarter: 2024Q2

REPORT INFORMATION
  Report Type: Spontaneous
  Country: CN (occurrence: CN)
  Receive Date: 20240212
  Receipt Date: 20240411
  Transmission Date: 20240715
  Serious: Yes (Hospitalization, Other)
  Sender: FDA-Public Use
  Company Number: CN-009507513-2402CHN003287

PATIENT
  Age: 70 Year
  Sex: Male
  Weight: 45 kg

DRUGS (1)
  1. KEYTRUDA [Suspect]
     Active Substance: PEMBROLIZUMAB
     Indication: Non-small cell lung cancer
     Dosage: 200 MG, Q3W, IV DRIP
     Route: 041
     Dates: start: 20230213, end: 20231116

REACTIONS (6)
  - Acute hepatic failure [Recovering/Resolving]
  - Pulmonary tuberculosis [Not Recovered/Not Resolved]
  - Atelectasis [Unknown]
  - Pruritus [Unknown]
  - Upper respiratory tract infection [Unknown]
  - Pyrexia [Unknown]

NARRATIVE: CASE EVENT DATE: 20231206
